FAERS Safety Report 6456711-X (Version None)
Quarter: 2009Q4

REPORT INFORMATION
  Report Type: 
  Country: None (occurrence: None)
  Receive Date: 20091125
  Receipt Date: 20091117
  Transmission Date: 20100525
  Serious: Yes (Death)
  Sender: FDA-Public Use
  Company Number: DE-BAYER-200939371GPV

PATIENT
  Age: 64 Year
  Sex: Male

DRUGS (5)
  1. ACETYLSALICYLIC ACID [Suspect]
     Indication: ANTIPLATELET THERAPY
  2. ACETYLSALICYLIC ACID [Suspect]
  3. CLOPIDOGREL [Suspect]
     Indication: ANTIPLATELET THERAPY
  4. CLOPIDOGREL [Suspect]
  5. DALTEPARIN [Suspect]
     Indication: THROMBOSIS PROPHYLAXIS
     Dosage: TOTAL DAILY DOSE: 10000 IU
     Route: 042

REACTIONS (4)
  - ACUTE MYOCARDIAL INFARCTION [None]
  - CARDIAC FAILURE ACUTE [None]
  - CIRCULATORY COLLAPSE [None]
  - THROMBOSIS IN DEVICE [None]
